FAERS Safety Report 9316389 (Version 1)
Quarter: 2013Q2

REPORT INFORMATION
  Report Type: Spontaneous
  Country: US (occurrence: None)
  Receive Date: 20130528
  Receipt Date: 20130528
  Transmission Date: 20140414
  Serious: Yes (Other)
  Sender: FDA-Public Use
  Company Number: None

PATIENT
  Age: 28 Year
  Sex: Female
  Weight: 68.04 kg

DRUGS (1)
  1. HALDOL [Suspect]
     Indication: PROCEDURAL NAUSEA
     Dosage: NOT KNOWN SINGLE DOSE
     Route: 042

REACTIONS (5)
  - Akathisia [None]
  - Emotional distress [None]
  - Dysphoria [None]
  - Fatigue [None]
  - Insomnia [None]
